FAERS Safety Report 4579130-X (Version None)
Quarter: 2005Q1

REPORT INFORMATION
  Report Type: 
  Country: None (occurrence: None)
  Receive Date: 20050121
  Receipt Date: 20040520
  Transmission Date: 20050727
  Serious: Yes (Hospitalization)
  Sender: FDA-Public Use
  Company Number: STA-AE-04-MTX-208

PATIENT
  Age: 72 Year
  Sex: Male

DRUGS (8)
  1. METHOTREXATE [Suspect]
     Indication: RHEUMATOID ARTHRITIS
     Dosage: 17.5 MG 1X PER 1 WK, ORAL
     Route: 048
     Dates: start: 20030601, end: 20040502
  2. REMICADE [Suspect]
     Indication: RHEUMATOID ARTHRITIS
     Dosage: 300 MG 1X PER 8 WK, INTRAVENOUS
     Route: 042
     Dates: start: 20020501, end: 20030501
  3. PREDNISONE [Concomitant]
  4. VIAGRA [Concomitant]
  5. FOLIC ACID [Concomitant]
  6. TUMS (CALCIUM CARBONATE/MAGNESIUM CARBONATE/MAGNESIUM TRISILICATE) [Concomitant]
  7. TYLENOL [Concomitant]
  8. IBUPROFEN [Concomitant]

REACTIONS (9)
  - CHILLS [None]
  - COUGH [None]
  - INFECTION [None]
  - MENTAL STATUS CHANGES [None]
  - PLEURAL EFFUSION [None]
  - PNEUMONIA [None]
  - PYREXIA [None]
  - SYNCOPE [None]
  - THINKING ABNORMAL [None]
